FAERS Safety Report 19589633 (Version 2)
Quarter: 2021Q3

REPORT INFORMATION
  Report Type: Spontaneous
  Country: US (occurrence: US)
  Receive Date: 20210721
  Receipt Date: 20210806
  Transmission Date: 20211014
  Serious: No
  Sender: FDA-Public Use
  Company Number: US-AMGEN-USASP2021110278

PATIENT
  Age: 48 Year
  Sex: Male
  Weight: 68.9 kg

DRUGS (1)
  1. BLINCYTO [Suspect]
     Active Substance: BLINATUMOMAB
     Indication: PRODUCT USED FOR UNKNOWN INDICATION
     Dosage: VIAL OF 35 MICROGRAM
     Route: 065

REACTIONS (1)
  - Transaminases increased [Unknown]
